FAERS Safety Report 13687228 (Version 2)
Quarter: 2017Q3

REPORT INFORMATION
  Report Type: Spontaneous
  Country: US (occurrence: US)
  Receive Date: 20170623
  Receipt Date: 20170713
  Transmission Date: 20171127
  Serious: Yes (Other)
  Sender: FDA-Public Use
  Company Number: US-CELGENEUS-USA-20170406663

PATIENT
  Age: 77 Year
  Sex: Male
  Weight: 86.26 kg

DRUGS (5)
  1. REVLIMID [Suspect]
     Active Substance: LENALIDOMIDE
     Dosage: 20 MILLIGRAM
     Route: 048
     Dates: start: 20170214
  2. REVLIMID [Suspect]
     Active Substance: LENALIDOMIDE
     Indication: PLASMA CELL MYELOMA
     Dosage: 25 MILLIGRAM
     Route: 048
     Dates: start: 201612
  3. VELCADE [Concomitant]
     Active Substance: BORTEZOMIB
     Indication: PLASMA CELL MYELOMA
     Dosage: 2.6 MILLIGRAM
     Route: 058
     Dates: start: 20170131
  4. ZOMETA [Concomitant]
     Active Substance: ZOLEDRONIC ACID
     Indication: PLASMA CELL MYELOMA
     Dosage: 2 MILLIGRAM
     Route: 040
     Dates: start: 20170117
  5. REVLIMID [Suspect]
     Active Substance: LENALIDOMIDE
     Dosage: 25 MILLIGRAM
     Route: 048
     Dates: start: 20170104

REACTIONS (3)
  - Haemoglobin decreased [Recovered/Resolved]
  - Red blood cell count decreased [Recovered/Resolved]
  - Haematocrit decreased [Recovered/Resolved]

NARRATIVE: CASE EVENT DATE: 20170214
